FAERS Safety Report 10010990 (Version 1)
Quarter: 2014Q1

REPORT INFORMATION
  Report Type: Spontaneous
  Country: GB (occurrence: None)
  Receive Date: 20140312
  Receipt Date: 20140312
  Transmission Date: 20141002
  Serious: Yes (Hospitalization)
  Sender: FDA-Public Use
  Company Number: 2014-000603

PATIENT
  Age: 63 Year
  Sex: Female
  Weight: 64 kg

DRUGS (4)
  1. DORYX [Suspect]
     Indication: SINUSITIS
     Route: 048
     Dates: start: 20140122, end: 20140126
  2. CITALOPRAM [Concomitant]
  3. PARACETAMOL [Concomitant]
  4. PRAMIPEXOLE [Concomitant]

REACTIONS (3)
  - Circulatory collapse [None]
  - Vomiting [None]
  - Pain [None]
